FAERS Safety Report 18229841 (Version 1)
Quarter: 2020Q3

REPORT INFORMATION
  Report Type: Report from Study
  Country: AU (occurrence: AU)
  Receive Date: 20200904
  Receipt Date: 20200904
  Transmission Date: 20201103
  Serious: Yes (Hospitalization)
  Sender: FDA-Public Use
  Company Number: AU-BIOGEN-2020BI00919410

PATIENT
  Age: 44 Year
  Sex: Female

DRUGS (1)
  1. TYSABRI [Suspect]
     Active Substance: NATALIZUMAB
     Indication: MULTIPLE SCLEROSIS
     Route: 042
     Dates: start: 20200402

REACTIONS (9)
  - Uterine leiomyoma [Unknown]
  - Endometriosis [Unknown]
  - Polyp [Unknown]
  - Functional gastrointestinal disorder [Not Recovered/Not Resolved]
  - Procedural pain [Unknown]
  - Abdominal pain [Unknown]
  - Multiple sclerosis [Not Recovered/Not Resolved]
  - Bladder dysfunction [Not Recovered/Not Resolved]
  - Back pain [Unknown]

NARRATIVE: CASE EVENT DATE: 202004
